FAERS Safety Report 4844421-1 (Version None)
Quarter: 2005Q4

REPORT INFORMATION
  Report Type: 
  Country: None (occurrence: None)
  Receive Date: 20051202
  Receipt Date: 20051123
  Transmission Date: 20060501
  Serious: Yes (Hospitalization, Other)
  Sender: FDA-Public Use
  Company Number: US-MERCK-0511USA04191

PATIENT
  Age: 70 Year
  Sex: Female
  Weight: 80 kg

DRUGS (8)
  1. VIOXX [Suspect]
     Indication: PAIN IN EXTREMITY
     Route: 048
     Dates: start: 19990801, end: 20040901
  2. VIOXX [Suspect]
     Indication: ARTHRITIS
     Route: 048
     Dates: start: 19990801, end: 20040901
  3. VITAMINS (UNSPECIFIED) [Concomitant]
     Route: 065
  4. CALCIUM (UNSPECIFIED) [Concomitant]
     Route: 065
  5. [THERAPY UNSPECIFIED] [Concomitant]
     Indication: THYROID DISORDER
     Route: 065
  6. ZOCOR [Concomitant]
     Route: 048
  7. PREMARIN [Concomitant]
     Route: 065
  8. EVISTA [Concomitant]
     Route: 065

REACTIONS (2)
  - CEREBROVASCULAR ACCIDENT [None]
  - TENDON DISORDER [None]
